FAERS Safety Report 8200459-8 (Version None)
Quarter: 2012Q1

REPORT INFORMATION
  Report Type: 
  Country: None (occurrence: None)
  Receive Date: 20120306
  Receipt Date: 20120224
  Transmission Date: 20120608
  Serious: Yes (Other)
  Sender: FDA-Public Use
  Company Number: 1202-114

PATIENT

DRUGS (2)
  1. EYLEA [Suspect]
     Dosage: INTRAVITREAL
     Route: 031
  2. BETADINE [Suspect]

REACTIONS (3)
  - CORNEAL DEPOSITS [None]
  - VISUAL ACUITY REDUCED [None]
  - KERATITIS [None]
